FAERS Safety Report 5283689-7 (Version None)
Quarter: 2007Q2

REPORT INFORMATION
  Report Type: 
  Country: None (occurrence: None)
  Receive Date: 20070402
  Receipt Date: 20070313
  Transmission Date: 20071010
  Serious: Yes (Other)
  Sender: FDA-Public Use
  Company Number: JP-SANOFI-SYNTHELABO-A01200703284

PATIENT
  Age: 26 Year
  Sex: Male
  Weight: 73 kg

DRUGS (3)
  1. DROPERIDOL [Concomitant]
     Indication: ANAESTHESIA
     Route: 065
     Dates: start: 20060802, end: 20060802
  2. PENTAZOCINE LACTATE [Suspect]
     Indication: ANAESTHESIA
     Route: 065
     Dates: start: 20060802, end: 20060802
  3. LIDOCAINE [Concomitant]
     Indication: LOCAL ANAESTHESIA
     Route: 065
     Dates: start: 20060802, end: 20060802

REACTIONS (2)
  - CYANOSIS [None]
  - GRAND MAL CONVULSION [None]
